FAERS Safety Report 9540574 (Version 1)
Quarter: 2013Q3

REPORT INFORMATION
  Report Type: Spontaneous
  Country: US (occurrence: US)
  Receive Date: 20130920
  Receipt Date: 20130920
  Transmission Date: 20140515
  Serious: No
  Sender: FDA-Public Use
  Company Number: US-PFIZER INC-2013271127

PATIENT
  Age: 68 Year
  Sex: Male
  Weight: 78.01 kg

DRUGS (6)
  1. ADVIL [Suspect]
     Indication: MUSCLE INJURY
     Dosage: 200 MG, 2-4 TIMES A DAY (ON AND OFF)
     Route: 048
  2. ADVIL [Suspect]
     Indication: SCIATICA
     Dosage: 200 MG, TWO TIMES A DAY (REGULAR BASIS)
     Route: 048
  3. ADVIL [Suspect]
     Indication: INFLAMMATION
  4. VITAMIN C [Suspect]
     Dosage: UNK
  5. VITAMIN D [Suspect]
     Dosage: UNK
  6. BABY ASPIRIN [Suspect]
     Dosage: UNK

REACTIONS (1)
  - Blood glucose increased [Unknown]
